FAERS Safety Report 4551586-8 (Version None)
Quarter: 2005Q1

REPORT INFORMATION
  Report Type: 
  Country: None (occurrence: None)
  Receive Date: 20050112
  Receipt Date: 20041229
  Transmission Date: 20050727
  Serious: Yes (Hospitalization, Other)
  Sender: FDA-Public Use
  Company Number: 2004234934US

PATIENT
  Age: 61 Year
  Sex: Female
  Weight: 56.69 kg

DRUGS (6)
  1. BEXTRA [Suspect]
     Indication: ARTHRALGIA
     Dosage: ORAL
     Route: 048
     Dates: start: 20031201, end: 20040727
  2. NAPROSYN [Suspect]
     Indication: ILL-DEFINED DISORDER
  3. ATENOLOL [Concomitant]
  4. HYDROCHLOROTHIAZIDE [Concomitant]
  5. FLUOXETINE HYDROCHLORIDE [Concomitant]
  6. AMLODIPINE BESYLATE [Concomitant]

REACTIONS (8)
  - ARTHRITIS [None]
  - BLOOD PRESSURE INADEQUATELY CONTROLLED [None]
  - ECONOMIC PROBLEM [None]
  - FALL [None]
  - RETINAL DETACHMENT [None]
  - TRANSIENT ISCHAEMIC ATTACK [None]
  - TREMOR [None]
  - WEIGHT INCREASED [None]
